FAERS Safety Report 15264096 (Version 1)
Quarter: 2018Q3

REPORT INFORMATION
  Report Type: Spontaneous
  Country: US (occurrence: US)
  Receive Date: 20180721
  Receipt Date: 20180721
  Transmission Date: 20181010
  Serious: No
  Sender: FDA-Public Use
  Company Number: None

PATIENT
  Age: 46 Year
  Sex: Female
  Weight: 65.25 kg

DRUGS (1)
  1. MIRENA [Suspect]
     Active Substance: LEVONORGESTREL
     Indication: MENORRHAGIA
     Dosage: ?          OTHER FREQUENCY:DAILY;?
     Route: 067

REACTIONS (3)
  - Metrorrhagia [None]
  - Breast engorgement [None]
  - Breast pain [None]

NARRATIVE: CASE EVENT DATE: 20180523
